FAERS Safety Report 14814256 (Version 1)
Quarter: 2018Q2

REPORT INFORMATION
  Report Type: Spontaneous
  Country: US (occurrence: US)
  Receive Date: 20180417
  Receipt Date: 20180417
  Transmission Date: 20180711
  Serious: No
  Sender: FDA-Public Use
  Company Number: None

PATIENT
  Age: 65 Year
  Sex: Female
  Weight: 90 kg

DRUGS (2)
  1. METHYLPHENIDATE ER 27 MG [Suspect]
     Active Substance: METHYLPHENIDATE HYDROCHLORIDE
     Indication: ATTENTION DEFICIT/HYPERACTIVITY DISORDER
     Dosage: ?          QUANTITY:60 TABLET(S);?
     Route: 048
     Dates: start: 20180101
  2. VITAMENS [Concomitant]

REACTIONS (4)
  - Economic problem [None]
  - Depression [None]
  - Product substitution issue [None]
  - Drug effect decreased [None]

NARRATIVE: CASE EVENT DATE: 20180101
